FAERS Safety Report 8805883 (Version 2)
Quarter: 2012Q4

REPORT INFORMATION
  Report Type: Report from Study
  Country: US (occurrence: US)
  Receive Date: 20120925
  Receipt Date: 20121004
  Transmission Date: 20130627
  Serious: Yes (Hospitalization, Other)
  Sender: FDA-Public Use
  Company Number: US-ABBOTT-12P-163-0980459-00

PATIENT
  Age: 65 Year
  Sex: Male

DRUGS (7)
  1. HUMIRA [Suspect]
     Indication: RHEUMATOID ARTHRITIS
     Dates: start: 201201, end: 201203
  2. HUMIRA [Suspect]
     Dosage: One pen every week
     Dates: start: 201207
  3. HUMIRA [Suspect]
     Dates: start: 201208
  4. HUMIRA [Suspect]
     Dosage: Weekly
     Dates: start: 201209
  5. METHOTREXATE [Concomitant]
     Indication: PRODUCT USED FOR UNKNOWN INDICATION
     Dosage: Weekly
  6. BYSTOLIC [Concomitant]
     Indication: PRODUCT USED FOR UNKNOWN INDICATION
     Dosage: Daily
  7. DEXILANT [Concomitant]
     Indication: PRODUCT USED FOR UNKNOWN INDICATION

REACTIONS (9)
  - Gastrointestinal disorder [Unknown]
  - Appendix disorder [Unknown]
  - Abdominal pain [Not Recovered/Not Resolved]
  - Diarrhoea [Not Recovered/Not Resolved]
  - Contusion [Unknown]
  - Vision blurred [Unknown]
  - Drug ineffective [Unknown]
  - Hypersomnia [Unknown]
  - Asthenia [Unknown]
